FAERS Safety Report 4683838-5 (Version None)
Quarter: 2005Q2

REPORT INFORMATION
  Report Type: 
  Country: None (occurrence: None)
  Receive Date: 20050602
  Receipt Date: 20050128
  Transmission Date: 20051028
  Serious: No
  Sender: FDA-Public Use
  Company Number: USA050189376

PATIENT
  Age: 74 Year
  Sex: Female

DRUGS (4)
  1. CYMBALTA [Suspect]
     Indication: DEPRESSION
     Dosage: 60 MG DAY
  2. NOVOLOG [Concomitant]
  3. DIOVAN [Concomitant]
  4. LANTUS [Concomitant]

REACTIONS (1)
  - DYSPNOEA [None]
